FAERS Safety Report 5237485-7 (Version None)
Quarter: 2007Q1

REPORT INFORMATION
  Report Type: 
  Country: None (occurrence: None)
  Receive Date: 20070213
  Receipt Date: 20070201
  Transmission Date: 20070707
  Serious: Yes (Hospitalization, Other)
  Sender: FDA-Public Use
  Company Number: AU-PFIZER INC-2006098956

PATIENT
  Sex: Male
  Weight: 67.6 kg

DRUGS (7)
  1. SU-011,248 [Suspect]
     Indication: MESOTHELIOMA
     Route: 048
  2. AVAPRO HCT [Concomitant]
     Route: 048
  3. ACYCLOVIR [Concomitant]
     Route: 061
  4. DEXAMETHASONE [Concomitant]
     Route: 061
  5. METOCLOPRAMIDE [Concomitant]
     Route: 048
  6. MS CONTIN [Concomitant]
     Route: 048
     Dates: start: 20050303
  7. MYLANTA [Concomitant]

REACTIONS (2)
  - CIRCULATORY COLLAPSE [None]
  - CONVULSION [None]
